FAERS Safety Report 5557043-4 (Version None)
Quarter: 2007Q4

REPORT INFORMATION
  Report Type: 
  Country: None (occurrence: None)
  Receive Date: 20071214
  Receipt Date: 20070919
  Transmission Date: 20080405
  Serious: No
  Sender: FDA-Public Use
  Company Number: US-AMGEN-KDL244161

PATIENT
  Sex: Female

DRUGS (2)
  1. ENBREL [Suspect]
     Indication: RHEUMATOID ARTHRITIS
     Route: 058
     Dates: start: 20070919
  2. SULFASALAZINE [Concomitant]
     Route: 048
     Dates: start: 20040101

REACTIONS (2)
  - FEELING COLD [None]
  - INJECTION SITE IRRITATION [None]
